FAERS Safety Report 21743637 (Version 1)
Quarter: 2022Q4

REPORT INFORMATION
  Report Type: Spontaneous
  Country: FR (occurrence: FR)
  Receive Date: 20221217
  Receipt Date: 20221217
  Transmission Date: 20230113
  Serious: Yes (Hospitalization)
  Sender: FDA-Public Use
  Company Number: FR-AFSSAPS-DJ20222091

PATIENT
  Age: 57 Year
  Sex: Female
  Weight: 60.3 kg

DRUGS (2)
  1. AMOXICILLIN [Suspect]
     Active Substance: AMOXICILLIN
     Indication: Staphylococcal sepsis
     Dosage: 3 GRAM, ONCE A DAY
     Route: 048
     Dates: start: 20221010, end: 20221020
  2. CLOXACILLIN SODIUM [Suspect]
     Active Substance: CLOXACILLIN SODIUM
     Indication: Staphylococcal sepsis
     Dosage: 8 GRAM, ONCE A DAY
     Route: 042
     Dates: start: 20221014, end: 20221023

REACTIONS (1)
  - Rash maculo-papular [Recovered/Resolved]

NARRATIVE: CASE EVENT DATE: 20221023
